FAERS Safety Report 8576347-4 (Version None)
Quarter: 2012Q3

REPORT INFORMATION
  Report Type: 
  Country: None (occurrence: None)
  Receive Date: 20120807
  Receipt Date: 20071023
  Transmission Date: 20120928
  Serious: Yes (Other)
  Sender: FDA-Public Use
  Company Number: CO-PFIZER INC-2012190962

PATIENT
  Age: 74 Year
  Sex: Female

DRUGS (4)
  1. QUINAPRIL AND HYDROCHLOROTHIAZIDE [Suspect]
     Indication: HYPERTENSION
     Dosage: 20 MG/12.5 MG, 1X/DAY
  2. ASPIRIN [Concomitant]
     Dosage: 100 MG, 1X/DAY
  3. LIPITOR [Suspect]
     Indication: DYSLIPIDAEMIA
     Dosage: 10 MG, 1X/DAY
  4. INSULIN HUMAN INJECTION, ISOPHANE AND INSULIN HUMAN ZINC SUSPENSION [Concomitant]
     Dosage: 10 IU EVERY 12 HOURS

REACTIONS (3)
  - CARDIOVASCULAR DISORDER [None]
  - PAIN IN EXTREMITY [None]
  - HYPERTENSIVE EMERGENCY [None]
